FAERS Safety Report 15089972 (Version 1)
Quarter: 2018Q2

REPORT INFORMATION
  Report Type: Spontaneous
  Country: US (occurrence: US)
  Receive Date: 20180608
  Receipt Date: 20180608
  Transmission Date: 20180711
  Serious: No
  Sender: FDA-Public Use
  Company Number: None

PATIENT
  Age: 75 Year
  Sex: Male

DRUGS (1)
  1. ODOMZO [Suspect]
     Active Substance: SONIDEGIB
     Dates: start: 20180315, end: 20180608

REACTIONS (4)
  - Dysgeusia [None]
  - Lacrimation increased [None]
  - Muscle spasms [None]
  - Balance disorder [None]

NARRATIVE: CASE EVENT DATE: 20180608
